FAERS Safety Report 4362724-4 (Version None)
Quarter: 2004Q2

REPORT INFORMATION
  Report Type: 
  Country: None (occurrence: None)
  Receive Date: 20040517
  Receipt Date: 20040406
  Transmission Date: 20050107
  Serious: No
  Sender: FDA-Public Use
  Company Number: S04-USA-02029-01

PATIENT
  Age: 77 Year
  Sex: Female

DRUGS (5)
  1. NAMENDA [Suspect]
     Indication: MEMORY IMPAIRMENT
     Dosage: 5 MG QD PO
     Route: 048
     Dates: start: 20040401
  2. TRAZODONE HCL [Concomitant]
  3. CARBIDOPA AND LEVODOPA [Concomitant]
  4. PROTONIX [Concomitant]
  5. ASPIRIN [Concomitant]

REACTIONS (2)
  - DIZZINESS [None]
  - HEADACHE [None]
